FAERS Safety Report 4517522-5 (Version None)
Quarter: 2004Q4

REPORT INFORMATION
  Report Type: 
  Country: None (occurrence: None)
  Receive Date: 20041027
  Receipt Date: 20040806
  Transmission Date: 20050328
  Serious: No
  Sender: FDA-Public Use
  Company Number: US086522

PATIENT
  Age: 59 Year
  Sex: Female

DRUGS (12)
  1. SENSIPAR [Suspect]
     Indication: HYPERPARATHYROIDISM SECONDARY
     Dosage: 30 MG, 1 IN 1 DAYS, PO
     Route: 048
     Dates: start: 20040611, end: 20040701
  2. FLUPHENAZINE [Concomitant]
  3. BENZATROPINE MESILATE [Concomitant]
  4. TRAZODONE HCL [Concomitant]
  5. LITHIUM [Concomitant]
  6. FOLIC ACID [Concomitant]
  7. DOCUSATE SODIUM [Concomitant]
  8. FAMOTIDINE [Concomitant]
  9. MULTIVITAMIN [Concomitant]
  10. DOXERCALCEROL [Concomitant]
  11. VENOFER [Concomitant]
  12. EPOGEN [Concomitant]

REACTIONS (3)
  - CONFUSIONAL STATE [None]
  - MEMORY IMPAIRMENT [None]
  - MUSCLE TWITCHING [None]
